FAERS Safety Report 11171829 (Version 4)
Quarter: 2018Q1

REPORT INFORMATION
  Report Type: Spontaneous
  Country: US (occurrence: US)
  Receive Date: 20150608
  Receipt Date: 20180212
  Transmission Date: 20180508
  Serious: No
  Sender: FDA-Public Use
  Company Number: US-ASTRAZENECA-2015SE52719

PATIENT
  Age: 67 Year
  Sex: Female
  Weight: 110.2 kg

DRUGS (10)
  1. BYDUREON [Suspect]
     Active Substance: EXENATIDE
     Indication: TYPE 2 DIABETES MELLITUS
     Route: 058
     Dates: start: 20170524
  2. MULTIVITAMIN [Concomitant]
     Active Substance: VITAMINS
  3. IBUPROFEN. [Concomitant]
     Active Substance: IBUPROFEN
  4. GLIPIZIDE. [Concomitant]
     Active Substance: GLIPIZIDE
     Dosage: TWO TIMES A DAY
  5. FISH OIL [Concomitant]
     Active Substance: FISH OIL
  6. VITAMIN D3 [Concomitant]
     Active Substance: CHOLECALCIFEROL
  7. BYDUREON [Suspect]
     Active Substance: EXENATIDE
     Indication: TYPE 2 DIABETES MELLITUS
     Route: 058
     Dates: start: 201410
  8. OMEPRAZOLE. [Suspect]
     Active Substance: OMEPRAZOLE
     Route: 048
  9. METFORMIN [Concomitant]
     Active Substance: METFORMIN HYDROCHLORIDE
  10. VALSARTAN. [Concomitant]
     Active Substance: VALSARTAN

REACTIONS (9)
  - Visual impairment [Unknown]
  - Rhinorrhoea [Not Recovered/Not Resolved]
  - Underdose [Unknown]
  - Incorrect dose administered [Unknown]
  - Device difficult to use [Unknown]
  - Injection site extravasation [Unknown]
  - Constipation [Unknown]
  - Injection site haemorrhage [Unknown]
  - Product quality issue [Unknown]

NARRATIVE: CASE EVENT DATE: 2014
